FAERS Safety Report 10538603 (Version 1)
Quarter: 2014Q4

REPORT INFORMATION
  Report Type: Report from Study
  Country: AT (occurrence: AT)
  Receive Date: 20141023
  Receipt Date: 20141023
  Transmission Date: 20150529
  Serious: Yes (Hospitalization, Other)
  Sender: FDA-Public Use
  Company Number: AT-BAYER-2014-150659

PATIENT
  Age: 61 Year
  Sex: Female
  Weight: 63 kg

DRUGS (7)
  1. DILATREND [Concomitant]
     Active Substance: CARVEDILOL
     Indication: HYPERTENSION
     Dosage: 12.5 MG DAILY
     Route: 048
     Dates: start: 20140823
  2. AMLODIPIN [Concomitant]
     Active Substance: AMLODIPINE BESYLATE
     Indication: HYPERTENSION
     Dosage: 5 MG DAILY
     Route: 048
     Dates: start: 20140716
  3. PRIMOVIST [Suspect]
     Active Substance: GADOXETATE DISODIUM
     Indication: HEPATOCELLULAR CARCINOMA
     Dosage: 6.6 ML
     Route: 042
     Dates: start: 20130711, end: 20130711
  4. ALDACTONE [Concomitant]
     Active Substance: SPIRONOLACTONE
     Indication: ASCITES
     Dosage: 40 MG DAILY
     Route: 048
     Dates: start: 20140823
  5. ALDACTONE [Concomitant]
     Active Substance: SPIRONOLACTONE
     Indication: OEDEMA
  6. SORAFENIB (RAF KINASE INHIBITOR) [Suspect]
     Active Substance: SORAFENIB
     Indication: HEPATOCELLULAR CARCINOMA
     Dosage: UNK
     Dates: start: 20130726, end: 20140805
  7. YTTRIUM (90 Y) CHLORIDE [Suspect]
     Active Substance: YTTRIUM Y-90
     Indication: HEPATOCELLULAR CARCINOMA
     Dosage: 0.88 GBQ
     Route: 013
     Dates: start: 20130723, end: 20130723

REACTIONS (4)
  - Circulatory collapse [Recovering/Resolving]
  - Blood bilirubin increased [Recovering/Resolving]
  - Pruritus generalised [Recovering/Resolving]
  - Hyponatraemia [Recovering/Resolving]

NARRATIVE: CASE EVENT DATE: 20140820
